FAERS Safety Report 8677724 (Version 5)
Quarter: 2013Q3

REPORT INFORMATION
  Report Type: Report from Study
  Country: US (occurrence: US)
  Receive Date: 20120723
  Receipt Date: 20130910
  Transmission Date: 20140515
  Serious: Yes (Hospitalization, Other)
  Sender: FDA-Public Use
  Company Number: US-PFIZER INC-2012168229

PATIENT
  Age: 64 Year
  Sex: Male
  Weight: 98.2 kg

DRUGS (9)
  1. AXITINIB [Suspect]
     Indication: METASTATIC RENAL CELL CARCINOMA
     Dosage: 3 MG, 2X/DAY, POST LEAD-IN PERIOD
     Route: 048
     Dates: start: 20100915
  2. ALLEGRA [Concomitant]
     Indication: MULTIPLE ALLERGIES
     Dosage: 1 TABLET, AS NEEDED
     Route: 048
     Dates: start: 2005
  3. TOPROL XL [Concomitant]
     Indication: HYPERTENSION
     Dosage: 50 MG, 1X/DAY
     Route: 048
     Dates: start: 200708
  4. CLONIDINE [Concomitant]
     Indication: HYPERTENSION
     Dosage: 0.1 MG, AS NEEDED
     Route: 048
     Dates: start: 20101118
  5. LISINOPRIL W/HYDROCHLOROTHIAZIDE [Concomitant]
     Indication: HYPERTENSION
     Dosage: 10/12.5 MG, 1X/DAY
     Route: 048
     Dates: start: 20110302
  6. EFFEXOR [Concomitant]
     Indication: ANXIETY
     Dosage: 37.5 MG, 1X/DAY
     Route: 048
     Dates: start: 201001
  7. LOMOTIL [Concomitant]
     Indication: DIARRHOEA
     Dosage: 1-2 TAB, AS NEEDED
     Route: 048
     Dates: start: 20110919
  8. OMEPRAZOLE [Concomitant]
     Indication: GASTROOESOPHAGEAL REFLUX DISEASE
     Dosage: 20 MG, 1X/DAY
     Route: 048
     Dates: start: 201106
  9. REGENECARE [Concomitant]
     Indication: PALMAR-PLANTAR ERYTHRODYSAESTHESIA SYNDROME
     Dosage: 2 %, 3-4 TIMES/DAY, AS NEEDED
     Route: 061
     Dates: start: 20120109

REACTIONS (3)
  - Appendicitis [Recovered/Resolved]
  - Blood creatinine increased [Recovered/Resolved]
  - Blood sodium decreased [Recovered/Resolved]
